FAERS Safety Report 7768868-9 (Version None)
Quarter: 2011Q3

REPORT INFORMATION
  Report Type: 
  Country: None (occurrence: None)
  Receive Date: 20110922
  Receipt Date: 20110311
  Transmission Date: 20111222
  Serious: No
  Sender: FDA-Public Use
  Company Number: US-ASTRAZENECA-2011SE13952

PATIENT
  Sex: Female
  Weight: 72.6 kg

DRUGS (3)
  1. CLONIPINE [Concomitant]
  2. PAXIL [Concomitant]
  3. SEROQUEL XR [Suspect]
     Indication: BIPOLAR DISORDER
     Route: 048
     Dates: start: 20110201, end: 20110301

REACTIONS (2)
  - ADVERSE DRUG REACTION [None]
  - FEELING ABNORMAL [None]
